FAERS Safety Report 5106260-6 (Version None)
Quarter: 2006Q3

REPORT INFORMATION
  Report Type: 
  Country: None (occurrence: None)
  Receive Date: 20060918
  Receipt Date: 20060911
  Transmission Date: 20061208
  Serious: Yes (Other)
  Sender: FDA-Public Use
  Company Number: 2006UW17789

PATIENT
  Age: 66 Year
  Sex: Female
  Weight: 76.2 kg

DRUGS (5)
  1. ARIMIDEX [Suspect]
     Indication: NEOPLASM PROPHYLAXIS
     Route: 048
     Dates: start: 20040301
  2. PREDNISONE [Concomitant]
     Dates: start: 20060701, end: 20060101
  3. ASACOL [Concomitant]
     Indication: COLITIS ULCERATIVE
     Dates: start: 20040101, end: 20060201
  4. HYDROCORTISONE [Concomitant]
     Dates: start: 20060101
  5. VIOXX [Concomitant]
     Dates: end: 20040401

REACTIONS (2)
  - COLITIS ULCERATIVE [None]
  - HEPATIC ENZYME INCREASED [None]
